FAERS Safety Report 6601881-3 (Version None)
Quarter: 2010Q1

REPORT INFORMATION
  Report Type: 
  Country: None (occurrence: None)
  Receive Date: 20100225
  Receipt Date: 20100216
  Transmission Date: 20100710
  Serious: Yes (Hospitalization)
  Sender: FDA-Public Use
  Company Number: US-ASTRAZENECA-2009UW06631

PATIENT
  Age: 18690 Day
  Sex: Male
  Weight: 76.8 kg

DRUGS (20)
  1. LISINOPRIL [Suspect]
     Indication: HYPERTENSION
     Route: 048
     Dates: start: 20061102
  2. NORVASC [Suspect]
     Indication: HYPERTENSION
     Route: 048
     Dates: start: 20090112
  3. ZD6474 [Suspect]
     Indication: THYROID CANCER
     Route: 048
     Dates: start: 20060809, end: 20090113
  4. LORAZEPAM [Concomitant]
     Indication: ANXIETY
     Route: 048
     Dates: start: 20071031
  5. WELLBUTRIN [Concomitant]
     Indication: DEPRESSION
     Route: 048
     Dates: start: 20071031
  6. LEXAPRO [Concomitant]
     Indication: DEPRESSION
     Route: 048
     Dates: start: 20060630
  7. LEVOTHROID [Concomitant]
     Indication: THYROID DISORDER
     Route: 048
     Dates: start: 20060630
  8. HYDROMORPHONE HYDROCHLORIDE [Concomitant]
     Indication: PAIN
     Route: 048
     Dates: start: 20090112
  9. METOCLOPRAMIDE HYDROCHLORIDE [Concomitant]
     Indication: IMPAIRED GASTRIC EMPTYING
     Dates: start: 20071031
  10. ASPIRIN [Concomitant]
     Dates: start: 20060630
  11. PEPCID [Concomitant]
     Indication: GASTROOESOPHAGEAL REFLUX DISEASE
     Route: 048
     Dates: start: 20080313
  12. IMODIUM [Concomitant]
     Indication: DIARRHOEA
     Route: 048
     Dates: start: 20060630
  13. ASCORBIC ACID [Concomitant]
     Dates: start: 20090112
  14. CLINDAMYCIN [Concomitant]
     Indication: RASH
     Route: 061
     Dates: start: 20090112
  15. DIFFERIN [Concomitant]
     Indication: RASH
     Route: 061
     Dates: start: 20090112
  16. FENTANYL [Concomitant]
     Indication: PAIN
     Route: 062
     Dates: start: 20090112
  17. MICONAZOLE [Concomitant]
     Indication: ANTIFUNGAL PROPHYLAXIS
     Dates: start: 20090112
  18. NYSTATIN [Concomitant]
     Indication: ANTIFUNGAL PROPHYLAXIS
     Route: 048
     Dates: start: 20090112
  19. NASACORT [Concomitant]
     Indication: HYPERSENSITIVITY
     Route: 045
     Dates: start: 20080313
  20. ZYPREXA [Concomitant]
     Indication: ANXIETY
     Route: 048
     Dates: start: 20080903

REACTIONS (5)
  - CULTURE URINE POSITIVE [None]
  - CYSTITIS [None]
  - EMBOLISM [None]
  - HYPOTENSION [None]
  - NAUSEA [None]
